FAERS Safety Report 8453773-5 (Version None)
Quarter: 2012Q2

REPORT INFORMATION
  Report Type: 
  Country: None (occurrence: None)
  Receive Date: 20120620
  Receipt Date: 20120614
  Transmission Date: 20120825
  Serious: Yes (Other)
  Sender: FDA-Public Use
  Company Number: US-TEVA-342297USA

PATIENT
  Sex: Male

DRUGS (1)
  1. TRAMADOL HCL [Suspect]
     Dosage: 4X PER DAY AS NEEDED

REACTIONS (4)
  - ABDOMINAL DISCOMFORT [None]
  - ASTHMA [None]
  - DIZZINESS [None]
  - DRUG INEFFECTIVE [None]
